FAERS Safety Report 4805019-4 (Version None)
Quarter: 2005Q4

REPORT INFORMATION
  Report Type: 
  Country: None (occurrence: None)
  Receive Date: 20051017
  Receipt Date: 20050930
  Transmission Date: 20060501
  Serious: Yes (Death)
  Sender: FDA-Public Use
  Company Number: 2005AL004234

PATIENT
  Age: 47 Year

DRUGS (4)
  1. KADIAN [Suspect]
     Dosage: PO
     Route: 048
  2. GABAPENTIN [Suspect]
     Dosage: PO
     Route: 048
  3. GABAPENTIN [Suspect]
     Dosage: PO
     Route: 048
  4. ETHANOL [Suspect]
     Dosage: PO
     Route: 048

REACTIONS (3)
  - CARDIAC ARREST [None]
  - MULTIPLE DRUG OVERDOSE [None]
  - RESPIRATORY ARREST [None]
